FAERS Safety Report 13855277 (Version 1)
Quarter: 2017Q3

REPORT INFORMATION
  Report Type: Spontaneous
  Country: US (occurrence: US)
  Receive Date: 20170810
  Receipt Date: 20170810
  Transmission Date: 20171127
  Serious: Yes (Other)
  Sender: FDA-Public Use
  Company Number: US-TEIKOKU PHARMA USA-TPU2017-00378

PATIENT

DRUGS (1)
  1. LIDOCAINE PATCH [Suspect]
     Active Substance: LIDOCAINE
     Indication: INJURY
     Dosage: HIPS K ^I IMAGINE WRIST AND NECK AND SHOULDER^
     Route: 061

REACTIONS (3)
  - Pain [Unknown]
  - Surgery [Unknown]
  - Memory impairment [Unknown]
